FAERS Safety Report 5480392-5 (Version None)
Quarter: 2007Q4

REPORT INFORMATION
  Report Type: 
  Country: None (occurrence: None)
  Receive Date: 20071009
  Receipt Date: 20070928
  Transmission Date: 20080405
  Serious: Yes (Hospitalization)
  Sender: FDA-Public Use
  Company Number: US-MERCK-0710USA00095

PATIENT
  Age: 87 Year
  Sex: Female

DRUGS (3)
  1. INVANZ [Suspect]
     Route: 042
  2. CEFTAZIDIME [Concomitant]
     Route: 065
  3. VANCOMYCIN [Concomitant]
     Route: 065

REACTIONS (1)
  - CLOSTRIDIAL INFECTION [None]
